FAERS Safety Report 17981470 (Version 6)
Quarter: 2021Q1

REPORT INFORMATION
  Report Type: Report from Study
  Country: None (occurrence: US)
  Receive Date: 20200706
  Receipt Date: 20210224
  Transmission Date: 20210419
  Serious: Yes (Other)
  Sender: FDA-Public Use
  Company Number: US-ABBVIE-20K-163-3468509-00

PATIENT
  Age: 64 Year
  Sex: Male
  Weight: 108.96 kg

DRUGS (8)
  1. RINVOQ [Suspect]
     Active Substance: UPADACITINIB
     Route: 048
     Dates: start: 20200310
  2. RINVOQ [Suspect]
     Active Substance: UPADACITINIB
     Route: 048
  3. VITAMIN B12 [Concomitant]
     Active Substance: CYANOCOBALAMIN
     Indication: VITAMIN SUPPLEMENTATION
  4. PLAVIX [Concomitant]
     Active Substance: CLOPIDOGREL BISULFATE
     Indication: CEREBROVASCULAR ACCIDENT
  5. RINVOQ [Suspect]
     Active Substance: UPADACITINIB
     Indication: RHEUMATOID ARTHRITIS
     Route: 048
     Dates: start: 2019, end: 20200305
  6. LIPITOR [Concomitant]
     Active Substance: ATORVASTATIN CALCIUM
     Indication: CEREBROVASCULAR ACCIDENT
  7. VITAMIN D [Concomitant]
     Active Substance: VITAMIN D NOS
     Indication: VITAMIN SUPPLEMENTATION
  8. FOLIC ACID. [Concomitant]
     Active Substance: FOLIC ACID
     Indication: VITAMIN SUPPLEMENTATION

REACTIONS (13)
  - Joint noise [Recovered/Resolved]
  - Muscle rupture [Recovered/Resolved]
  - Joint noise [Recovered/Resolved]
  - Musculoskeletal disorder [Recovered/Resolved]
  - Muscle rupture [Recovered/Resolved]
  - Transient ischaemic attack [Recovered/Resolved]
  - Tendon rupture [Recovered/Resolved]
  - COVID-19 [Recovered/Resolved]
  - Knee arthroplasty [Unknown]
  - Osteoarthritis [Recovered/Resolved]
  - Transient ischaemic attack [Unknown]
  - Shoulder operation [Recovered/Resolved]
  - Arthralgia [Recovered/Resolved]

NARRATIVE: CASE EVENT DATE: 2019
